FAERS Safety Report 11452832 (Version 1)
Quarter: 2015Q3

REPORT INFORMATION
  Report Type: Spontaneous
  Country: US (occurrence: US)
  Receive Date: 20150903
  Receipt Date: 20150903
  Transmission Date: 20151125
  Serious: Yes (Death)
  Sender: FDA-Public Use
  Company Number: US-TARO-2015TAR00806

PATIENT
  Age: 6 Month
  Sex: Female

DRUGS (2)
  1. ONDANSETRON (TEVA) [Suspect]
     Active Substance: ONDANSETRON
     Dosage: UNK
     Route: 064
     Dates: start: 2013
  2. ONDANSETRON ORAL SOLUTION USP 4MG/5ML [Suspect]
     Active Substance: ONDANSETRON
     Indication: VOMITING
     Dosage: UNK, ONCE
     Route: 048
     Dates: start: 20140805, end: 20140805

REACTIONS (18)
  - Anxiety [None]
  - Ventricular septal defect [None]
  - Truncus arteriosus persistent [None]
  - Vomiting [None]
  - Retching [None]
  - Pallor [None]
  - Off label use [Fatal]
  - Pain [Unknown]
  - Emotional distress [Unknown]
  - Quality of life decreased [Unknown]
  - Maternal drugs affecting foetus [None]
  - Upper respiratory tract infection [None]
  - Anhedonia [None]
  - Single functional kidney [None]
  - Lethargy [Unknown]
  - Pericardial effusion [None]
  - Asthenia [None]
  - Cardio-respiratory arrest [Fatal]

NARRATIVE: CASE EVENT DATE: 20140805
